FAERS Safety Report 6426096-3 (Version None)
Quarter: 2009Q4

REPORT INFORMATION
  Report Type: 
  Country: None (occurrence: None)
  Receive Date: 20091103
  Receipt Date: 20091103
  Transmission Date: 20100525
  Serious: Yes (Death)
  Sender: FDA-Public Use
  Company Number: None

PATIENT
  Sex: Female
  Weight: 48.9885 kg

DRUGS (10)
  1. ALIMTA [Suspect]
     Indication: NON-SMALL CELL LUNG CANCER
     Dosage: 750 MG Q 3 WEEKS IV
     Route: 042
     Dates: start: 20090820, end: 20090910
  2. NEULASTA [Concomitant]
  3. LOPRESSOR [Concomitant]
  4. GINGKO BILOBA [Concomitant]
  5. ZINC [Concomitant]
  6. VITAMIN B6 [Concomitant]
  7. ASCORBIC ACID [Concomitant]
  8. FOLIC ACID [Concomitant]
  9. SENOKOT [Concomitant]
  10. COLACE [Concomitant]

REACTIONS (6)
  - CONDITION AGGRAVATED [None]
  - DECREASED APPETITE [None]
  - DEHYDRATION [None]
  - DIALYSIS [None]
  - HYPOVOLAEMIA [None]
  - RENAL FAILURE ACUTE [None]
